FAERS Safety Report 13563552 (Version 3)
Quarter: 2017Q3

REPORT INFORMATION
  Report Type: Spontaneous
  Country: US (occurrence: US)
  Receive Date: 20170519
  Receipt Date: 20170807
  Transmission Date: 20171127
  Serious: Yes (Other)
  Sender: FDA-Public Use
  Company Number: US-PFIZER INC-2017219048

PATIENT
  Age: 31 Year
  Sex: Female

DRUGS (2)
  1. CHANTIX [Suspect]
     Active Substance: VARENICLINE TARTRATE
     Indication: SMOKING CESSATION THERAPY
     Dosage: 1 MG, 2X/DAY
     Dates: start: 20170423, end: 20170514
  2. ZYRTEC [Concomitant]
     Active Substance: CETIRIZINE HYDROCHLORIDE
     Indication: HYPERSENSITIVITY
     Dosage: 1 DF, DAILY (1 TAKE)

REACTIONS (8)
  - Headache [Recovered/Resolved]
  - Constipation [Recovered/Resolved]
  - Malaise [Recovered/Resolved]
  - Suicide attempt [Recovered/Resolved]
  - Insomnia [Recovered/Resolved]
  - Vomiting [Recovered/Resolved]
  - Abnormal dreams [Recovered/Resolved]
  - Depression [Recovered/Resolved]

NARRATIVE: CASE EVENT DATE: 2017
